FAERS Safety Report 25357053 (Version 1)
Quarter: 2025Q2

REPORT INFORMATION
  Report Type: Spontaneous
  Country: US (occurrence: US)
  Receive Date: 20250526
  Receipt Date: 20250526
  Transmission Date: 20250716
  Serious: Yes (Other)
  Sender: KVK-TECH
  Company Number: US-KVK-TECH, INC-20250300034

PATIENT
  Age: 68 Year
  Sex: Male
  Weight: 65.76 kg

DRUGS (4)
  1. METHYLPHENIDATE HYDROCHLORIDE [Suspect]
     Active Substance: METHYLPHENIDATE HYDROCHLORIDE
     Indication: Attention deficit hyperactivity disorder
     Route: 048
     Dates: start: 20250308, end: 202503
  2. METHYLPHENIDATE HYDROCHLORIDE [Suspect]
     Active Substance: METHYLPHENIDATE HYDROCHLORIDE
     Indication: Emotional disorder
     Route: 060
     Dates: start: 20250310
  3. FLUCONAZOLE [Concomitant]
     Active Substance: FLUCONAZOLE
     Indication: Cerebral fungal infection
     Route: 065
  4. VITAMINS NOS [Concomitant]
     Active Substance: VITAMINS

REACTIONS (19)
  - Cardiac flutter [Recovered/Resolved]
  - Feeling abnormal [Recovered/Resolved]
  - Dry mouth [Recovered/Resolved]
  - Ocular discomfort [Recovered/Resolved]
  - Head discomfort [Recovered/Resolved]
  - Asthenia [Recovered/Resolved]
  - Musculoskeletal stiffness [Recovered/Resolved]
  - Memory impairment [Recovered/Resolved]
  - Therapeutic product effect delayed [Recovered/Resolved]
  - Swelling [Recovered/Resolved]
  - Disturbance in attention [Recovered/Resolved]
  - Diarrhoea [Recovered/Resolved]
  - Headache [Recovered/Resolved]
  - Decreased appetite [Recovered/Resolved]
  - Pain [Recovered/Resolved]
  - Hyperhidrosis [Recovered/Resolved]
  - Product administration error [Unknown]
  - Product quality issue [Unknown]
  - Suspected product tampering [Unknown]

NARRATIVE: CASE EVENT DATE: 20250301
